FAERS Safety Report 15774876 (Version 1)
Quarter: 2018Q4

REPORT INFORMATION
  Report Type: Spontaneous
  Country: US (occurrence: US)
  Receive Date: 20181230
  Receipt Date: 20181230
  Transmission Date: 20190205
  Serious: No
  Sender: FDA-Public Use
  Company Number: US-009507513-1812USA005943

PATIENT
  Sex: Female

DRUGS (1)
  1. PROVENTIL [Suspect]
     Active Substance: ALBUTEROL
     Indication: WHEEZING
     Dosage: 2 DOSAGE FORM, PRN (2 PUFFS EVERY 4 TO 6 HOURS AS NEEDED)
     Route: 048
     Dates: start: 201806

REACTIONS (5)
  - Product quality issue [Unknown]
  - Wheezing [Recovering/Resolving]
  - Product lot number issue [Unknown]
  - Product dose omission [Unknown]
  - Product expiration date issue [Unknown]

NARRATIVE: CASE EVENT DATE: 2018
